FAERS Safety Report 9931602 (Version 2)
Quarter: 2014Q1

REPORT INFORMATION
  Report Type: Spontaneous
  Country: US (occurrence: US)
  Receive Date: 20140228
  Receipt Date: 20140307
  Transmission Date: 20141002
  Serious: No
  Sender: FDA-Public Use
  Company Number: US-009507513-1402USA013346

PATIENT
  Sex: 0

DRUGS (1)
  1. FOLLISTIM AQ [Suspect]

REACTIONS (2)
  - Expired drug administered [Unknown]
  - No adverse event [Unknown]
